FAERS Safety Report 5938706-5 (Version None)
Quarter: 2008Q4

REPORT INFORMATION
  Report Type: 
  Country: None (occurrence: None)
  Receive Date: 20081103
  Receipt Date: 20081028
  Transmission Date: 20090506
  Serious: Yes (Other)
  Sender: FDA-Public Use
  Company Number: US-ELI_LILLY_AND_COMPANY-US200807004128

PATIENT
  Sex: Male

DRUGS (3)
  1. HUMULIN 70/30 [Suspect]
     Dosage: 35 U, 2/D
  2. HUMULIN 70/30 [Suspect]
     Dosage: 35 U, 2/D
  3. PREVACID [Concomitant]
     Indication: GASTROOESOPHAGEAL REFLUX DISEASE
     Dosage: 30 MG, UNK
     Route: 048
     Dates: start: 20010101

REACTIONS (7)
  - ARTHRALGIA [None]
  - ASTHENIA [None]
  - BLOOD GLUCOSE DECREASED [None]
  - BLOOD GLUCOSE INCREASED [None]
  - STRESS [None]
  - TENDON DISORDER [None]
  - TREMOR [None]
